FAERS Safety Report 20958555 (Version 1)
Quarter: 2022Q2

REPORT INFORMATION
  Report Type: Report from Study
  Country: US (occurrence: US)
  Receive Date: 20220614
  Receipt Date: 20220614
  Transmission Date: 20220720
  Serious: Yes (Other)
  Sender: FDA-Public Use
  Company Number: US-BAYER-2022A080446

PATIENT
  Age: 6 Year
  Sex: Male

DRUGS (2)
  1. NEXAVAR [Suspect]
     Active Substance: SORAFENIB
     Indication: Malignant connective tissue neoplasm
     Dosage: 200 MG, QD
     Route: 048
     Dates: start: 20220509
  2. NEXAVAR [Suspect]
     Active Substance: SORAFENIB
     Indication: Soft tissue sarcoma

REACTIONS (4)
  - Emergency care [Unknown]
  - Spinal cord neoplasm [Unknown]
  - Rash [Unknown]
  - Off label use [Unknown]

NARRATIVE: CASE EVENT DATE: 20220509
